FAERS Safety Report 5007625-3 (Version None)
Quarter: 2006Q2

REPORT INFORMATION
  Report Type: 
  Country: None (occurrence: None)
  Receive Date: 20060522
  Receipt Date: 20060511
  Transmission Date: 20061013
  Serious: Yes (Other)
  Sender: FDA-Public Use
  Company Number: US-ROCHE-447972

PATIENT
  Age: 21 Year
  Sex: Female

DRUGS (1)
  1. ACCUTANE [Suspect]
     Dosage: TAKEN EVERY DAY
     Route: 065
     Dates: start: 20050415, end: 20050715

REACTIONS (2)
  - NO ADVERSE EFFECT [None]
  - PREGNANCY [None]
